FAERS Safety Report 7178251-5 (Version None)
Quarter: 2010Q4

REPORT INFORMATION
  Report Type: 
  Country: None (occurrence: None)
  Receive Date: 20101220
  Receipt Date: 20101208
  Transmission Date: 20110411
  Serious: Yes (Hospitalization, Other)
  Sender: FDA-Public Use
  Company Number: US-ROCHE-727305

PATIENT
  Sex: Male

DRUGS (2)
  1. ACCUTANE [Suspect]
     Indication: ACNE
     Route: 065
     Dates: start: 19820101, end: 19830101
  2. ACCUTANE [Suspect]
     Route: 065
     Dates: start: 19830101, end: 19840101

REACTIONS (10)
  - ACQUIRED OESOPHAGEAL WEB [None]
  - ARTHRALGIA [None]
  - CROHN'S DISEASE [None]
  - DIVERTICULUM [None]
  - GASTROINTESTINAL INJURY [None]
  - HAEMORRHOIDS [None]
  - IRON DEFICIENCY ANAEMIA [None]
  - RECTAL ULCER [None]
  - SMALL INTESTINAL STENOSIS [None]
  - TENDONITIS [None]
